FAERS Safety Report 6428915-3 (Version None)
Quarter: 2009Q4

REPORT INFORMATION
  Report Type: 
  Country: None (occurrence: None)
  Receive Date: 20091104
  Receipt Date: 20091104
  Transmission Date: 20100525
  Serious: Yes (Other)
  Sender: FDA-Public Use
  Company Number: None

PATIENT
  Age: 37 Year
  Sex: Female
  Weight: 77.1115 kg

DRUGS (1)
  1. YAZ [Suspect]
     Indication: MENSTRUAL CYCLE MANAGEMENT
     Dosage: 1 TABLET DAILY PO
     Route: 048
     Dates: start: 20091016, end: 20091029

REACTIONS (11)
  - BLOOD PRESSURE DECREASED [None]
  - CHEST PAIN [None]
  - DYSPNOEA [None]
  - FLUSHING [None]
  - HEART RATE INCREASED [None]
  - HYPERHIDROSIS [None]
  - NAUSEA [None]
  - PRURITUS [None]
  - SYNCOPE [None]
  - URTICARIA [None]
  - VOMITING [None]
